FAERS Safety Report 6094093-6 (Version None)
Quarter: 2009Q1

REPORT INFORMATION
  Report Type: 
  Country: None (occurrence: None)
  Receive Date: 20090223
  Receipt Date: 20090302
  Transmission Date: 20090719
  Serious: No
  Sender: FDA-Public Use
  Company Number: FR-GUERBET-20090031

PATIENT
  Age: 48 Year
  Sex: Male

DRUGS (2)
  1. HEXABRIX [Suspect]
     Indication: ARTHROGRAM
     Dosage: 15, ML MILLILITRE(S), 1, 1, TOTAL   INTRA-ARTICULAR
     Route: 014
     Dates: start: 20080810, end: 20080810
  2. ADRENALINE: INTRA-ARTICULAR / ADRENALINE [Concomitant]

REACTIONS (5)
  - DRUG ADMINISTRATION ERROR [None]
  - HYPERAESTHESIA [None]
  - INCORRECT DOSE ADMINISTERED [None]
  - MUSCULOSKELETAL STIFFNESS [None]
  - SYNOVITIS [None]
